FAERS Safety Report 5960072-X (Version None)
Quarter: 2008Q4

REPORT INFORMATION
  Report Type: 
  Country: None (occurrence: None)
  Receive Date: 20081119
  Receipt Date: 20081119
  Transmission Date: 20090506
  Serious: Yes (Life-Threatening, Hospitalization)
  Sender: FDA-Public Use
  Company Number: None

PATIENT
  Age: 80 Year
  Sex: Female
  Weight: 60 kg

DRUGS (2)
  1. ONDANSETRON [Suspect]
     Indication: NAUSEA
     Dosage: 32MG DA. ONCE PO
     Route: 048
     Dates: end: 20080927
  2. FLECAINIDE ACETATE [Suspect]
     Indication: ATRIAL FIBRILLATION
     Dosage: DAILY PO
     Route: 048
     Dates: end: 20080927

REACTIONS (8)
  - ABDOMINAL PAIN [None]
  - ATRIAL FIBRILLATION [None]
  - CARDIAC ARREST [None]
  - FEBRILE NEUTROPENIA [None]
  - NAUSEA [None]
  - TORSADE DE POINTES [None]
  - VENTRICULAR FIBRILLATION [None]
  - VENTRICULAR TACHYCARDIA [None]
